FAERS Safety Report 6527612-3 (Version None)
Quarter: 2010Q1

REPORT INFORMATION
  Report Type: 
  Country: None (occurrence: None)
  Receive Date: 20100105
  Receipt Date: 20091224
  Transmission Date: 20100710
  Serious: Yes (Life-Threatening, Other)
  Sender: FDA-Public Use
  Company Number: JP-ABBOTT-09P-087-0615482-00

PATIENT
  Sex: Male
  Weight: 62 kg

DRUGS (15)
  1. SEVOFLURANE [Suspect]
     Indication: SURGERY
     Dosage: 4-2% FOR 60 MINUITS
     Route: 055
     Dates: start: 20091208, end: 20091208
  2. SEVOFLURANE [Suspect]
     Dosage: DECREASED TO 1%
     Dates: start: 20091208, end: 20091208
  3. VECURONIUM BROMIDE [Suspect]
     Indication: SURGERY
     Route: 042
     Dates: start: 20091208, end: 20091208
  4. VECURONIUM BROMIDE [Suspect]
     Route: 042
     Dates: start: 20091208, end: 20091208
  5. XYLOCAINE E INJ [Concomitant]
     Indication: SURGERY
     Route: 058
     Dates: start: 20091208, end: 20091208
  6. DIPRIVAN [Concomitant]
     Indication: SURGERY
     Route: 042
     Dates: start: 20091208, end: 20091208
  7. DIPRIVAN [Concomitant]
     Dosage: CONTINUOUS DRIP
     Dates: start: 20091208
  8. ATROPINE SULFATE [Concomitant]
     Indication: ANAESTHETIC PREMEDICATION
     Route: 030
     Dates: start: 20091208, end: 20091208
  9. ATARAX [Concomitant]
     Indication: ANAESTHETIC PREMEDICATION
     Route: 030
     Dates: start: 20091208, end: 20091208
  10. CEFAMEZIN ALPHA [Concomitant]
     Indication: SURGERY
     Route: 041
     Dates: start: 20091208, end: 20091212
  11. NITROUS OXIDE [Concomitant]
     Indication: INDUCTION OF ANAESTHESIA
     Dosage: 4 L/MINUITS MAINTENANCE TOTAL 6L
     Dates: start: 20091208, end: 20091208
  12. NITROUS OXIDE [Concomitant]
     Indication: MAINTENANCE OF ANAESTHESIA
  13. OXYGEN [Concomitant]
     Indication: DRUG USE FOR UNKNOWN INDICATION
     Dosage: 6 L UNDER ANESTHESIA
     Dates: start: 20091208, end: 20091208
  14. OXYGEN [Concomitant]
     Dosage: 2L
  15. SOLU-MEDROL [Concomitant]
     Indication: DRUG USE FOR UNKNOWN INDICATION
     Dates: start: 20091208, end: 20091208

REACTIONS (4)
  - BLOOD PRESSURE DECREASED [None]
  - EPIGLOTTIC OEDEMA [None]
  - LARYNGEAL OEDEMA [None]
  - OBSTRUCTIVE AIRWAYS DISORDER [None]
